FAERS Safety Report 6431301-3 (Version None)
Quarter: 2009Q4

REPORT INFORMATION
  Report Type: 
  Country: None (occurrence: None)
  Receive Date: 20091106
  Receipt Date: 20091026
  Transmission Date: 20100525
  Serious: Yes (Hospitalization)
  Sender: FDA-Public Use
  Company Number: ES-ELI_LILLY_AND_COMPANY-ES200910007123

PATIENT
  Age: 82 Year
  Sex: Male

DRUGS (6)
  1. FORTEO [Suspect]
     Indication: OSTEOPOROSIS
     Dosage: 20 UG, UNKNOWN
     Route: 058
     Dates: start: 20090901
  2. SINTROM [Concomitant]
     Dosage: UNK, UNKNOWN
     Route: 065
  3. IDEOS                              /00944201/ [Concomitant]
     Dosage: UNK, UNKNOWN
     Route: 065
  4. AMERIDE [Concomitant]
     Dosage: UNK, UNKNOWN
     Route: 065
  5. METFORMIN HCL [Concomitant]
     Dosage: UNK, UNKNOWN
     Route: 065
  6. PLANTABEN [Concomitant]
     Dosage: UNK, UNKNOWN
     Route: 065

REACTIONS (3)
  - ASTHENIA [None]
  - INFECTION [None]
  - PAIN IN EXTREMITY [None]
